FAERS Safety Report 19452331 (Version 1)
Quarter: 2021Q2

REPORT INFORMATION
  Report Type: Report from Study
  Country: US (occurrence: US)
  Receive Date: 20210623
  Receipt Date: 20210623
  Transmission Date: 20210717
  Serious: Yes (Other)
  Sender: FDA-Public Use
  Company Number: US-UCBSA-2021028952

PATIENT
  Sex: Female

DRUGS (1)
  1. LACOSAMIDE. [Suspect]
     Active Substance: LACOSAMIDE
     Indication: SEIZURE
     Dosage: 200MG 1TAB IN AM, 1.5TABS AT AFTERNOON 1TAB QPM

REACTIONS (3)
  - Overdose [Unknown]
  - Product use issue [Unknown]
  - Gastric ulcer [Not Recovered/Not Resolved]
